FAERS Safety Report 12357776 (Version 2)
Quarter: 2016Q2

REPORT INFORMATION
  Report Type: Spontaneous
  Country: BR (occurrence: BR)
  Receive Date: 20160512
  Receipt Date: 20160615
  Transmission Date: 20160815
  Serious: Yes (Other)
  Sender: FDA-Public Use
  Company Number: BR-ROCHE-1756469

PATIENT
  Age: 53 Year
  Sex: Female
  Weight: 77 kg

DRUGS (1)
  1. CYMEVENE [Suspect]
     Active Substance: GANCICLOVIR
     Indication: CYTOMEGALOVIRUS INFECTION
     Route: 042
     Dates: start: 20160418

REACTIONS (2)
  - Pancytopenia [Unknown]
  - Bone marrow failure [Unknown]

NARRATIVE: CASE EVENT DATE: 20160418
